FAERS Safety Report 17790881 (Version 1)
Quarter: 2020Q2

REPORT INFORMATION
  Report Type: Spontaneous
  Country: US (occurrence: US)
  Receive Date: 20200514
  Receipt Date: 20200514
  Transmission Date: 20200714
  Serious: Yes (Death)
  Sender: FDA-Public Use
  Company Number: None

PATIENT
  Age: 56 Year
  Sex: Male

DRUGS (2)
  1. CAPECITABINE 150MG TABLETS [Suspect]
     Active Substance: CAPECITABINE
     Indication: PRODUCT USED FOR UNKNOWN INDICATION
     Dosage: ?OTHER ROUTE:PO 14D EVERY 21D?
     Route: 048
     Dates: start: 20200403, end: 20200511
  2. CAPECITABINE 500MG TAB [Suspect]
     Active Substance: CAPECITABINE
     Indication: PRODUCT USED FOR UNKNOWN INDICATION
     Dosage: ;OTHER ROUTE:PO 14D EVERY 21D?
     Route: 048
     Dates: start: 20200403, end: 20200511

REACTIONS (1)
  - Death [None]

NARRATIVE: CASE EVENT DATE: 20200511
